FAERS Safety Report 13943653 (Version 5)
Quarter: 2018Q3

REPORT INFORMATION
  Report Type: Spontaneous
  Country: DE (occurrence: DE)
  Receive Date: 20170907
  Receipt Date: 20180927
  Transmission Date: 20181010
  Serious: Yes (Death)
  Sender: FDA-Public Use
  Company Number: DE-JNJFOC-20170828087

PATIENT
  Sex: Female

DRUGS (6)
  1. QUETIAPINE. [Suspect]
     Active Substance: QUETIAPINE
     Indication: SUICIDE ATTEMPT
     Dosage: ABSOLUTE TOTAL QUANTITY 14.5 GRAM, DOSE 25 MG/KG. CUMULATIVE DOSE TO FIRST REACTION:8.7 GRAM
     Route: 065
  2. IBUPROFEN. [Suspect]
     Active Substance: IBUPROFEN
     Indication: SUICIDE ATTEMPT
     Dosage: CUMULATIVE DOSE TO FIRST REACTION: 2 GRAM
     Route: 065
  3. IBUPROFEN. [Suspect]
     Active Substance: IBUPROFEN
     Indication: SUICIDE ATTEMPT
     Dosage: ABSOLUTE TOTAL QUANTITY 5 GRAM. DOSE; 8 MG/KG BODY WEIGHT. CUMULATIVE DOSE TO FIRST REACTION:3
     Route: 065
  4. QUETIAPINE. [Suspect]
     Active Substance: QUETIAPINE
     Indication: SUICIDE ATTEMPT
     Dosage: CUMULATIVE DOSE TO FIRST REACTION: 5.8 GRAM
     Route: 065
  5. IBUPROFEN. [Suspect]
     Active Substance: IBUPROFEN
     Route: 065
  6. MIRTAZAPINE. [Suspect]
     Active Substance: MIRTAZAPINE
     Indication: SUICIDE ATTEMPT
     Dosage: DOSE PER KG BODY WEIGHT: 13 MG/KG. CUMULATIVE DOSE TO FIRST REACTION: 7.5 GRAM
     Route: 065

REACTIONS (2)
  - Completed suicide [Fatal]
  - Intentional overdose [Fatal]
